FAERS Safety Report 8100354-9 (Version None)
Quarter: 2012Q1

REPORT INFORMATION
  Report Type: 
  Country: None (occurrence: None)
  Receive Date: 20120129
  Receipt Date: 20111123
  Transmission Date: 20120608
  Serious: No
  Sender: FDA-Public Use
  Company Number: US-ABBOTT-11P-163-0877758-00

PATIENT
  Age: 41 Year
  Sex: Female

DRUGS (6)
  1. RANITIDINE [Concomitant]
     Indication: CROHN'S DISEASE
  2. ALDACTONE [Concomitant]
     Indication: POLYCYSTIC OVARIES
  3. HUMIRA [Suspect]
     Indication: CROHN'S DISEASE
     Dates: start: 20110701
  4. VITAMIN D [Concomitant]
     Indication: PRODUCT USED FOR UNKNOWN INDICATION
  5. PENTASA [Concomitant]
     Indication: CROHN'S DISEASE
  6. ENTOCORT EC [Concomitant]
     Indication: CROHN'S DISEASE

REACTIONS (3)
  - DEVICE MALFUNCTION [None]
  - INJECTION SITE PAIN [None]
  - INCORRECT DOSE ADMINISTERED [None]
